FAERS Safety Report 19625791 (Version 1)
Quarter: 2021Q3

REPORT INFORMATION
  Report Type: Spontaneous
  Country: CA (occurrence: CA)
  Receive Date: 20210729
  Receipt Date: 20210729
  Transmission Date: 20211014
  Serious: Yes (Other)
  Sender: FDA-Public Use
  Company Number: CA-ROCHE-2876999

PATIENT
  Age: 78 Year
  Sex: Male

DRUGS (10)
  1. LASIX [Concomitant]
     Active Substance: FUROSEMIDE
  2. PARIET [Concomitant]
     Active Substance: RABEPRAZOLE SODIUM
  3. BENADRYL [Concomitant]
     Active Substance: DIPHENHYDRAMINE HYDROCHLORIDE
     Route: 065
  4. ROSUVASTATIN. [Concomitant]
     Active Substance: ROSUVASTATIN
     Route: 058
  5. METHYLPREDNISOLONE SODIUM SUCCINATE. [Concomitant]
     Active Substance: METHYLPREDNISOLONE SODIUM SUCCINATE
     Route: 042
  6. RITUXIMAB. [Suspect]
     Active Substance: RITUXIMAB
     Indication: GRANULOMATOSIS WITH POLYANGIITIS
     Route: 042
  7. EZETIMIBE. [Concomitant]
     Active Substance: EZETIMIBE
  8. MELATONIN [Concomitant]
     Active Substance: MELATONIN
  9. PREDNISONE. [Concomitant]
     Active Substance: PREDNISONE
  10. TYLENOL [Concomitant]
     Active Substance: ACETAMINOPHEN
     Route: 048

REACTIONS (3)
  - Blood pressure systolic increased [Not Recovered/Not Resolved]
  - Blindness [Not Recovered/Not Resolved]
  - Cataract [Not Recovered/Not Resolved]
